FAERS Safety Report 9707202 (Version 3)
Quarter: 2014Q1

REPORT INFORMATION
  Report Type: Report from Study
  Country: JP (occurrence: JP)
  Receive Date: 20131125
  Receipt Date: 20140212
  Transmission Date: 20141002
  Serious: Yes (Hospitalization, Disabling)
  Sender: FDA-Public Use
  Company Number: JP-JNJFOC-20131110839

PATIENT
  Age: 72 Year
  Sex: Female
  Weight: 58 kg

DRUGS (8)
  1. XARELTO [Suspect]
     Indication: THROMBOSIS PROPHYLAXIS
     Route: 048
     Dates: start: 20130719
  2. XARELTO [Suspect]
     Indication: CEREBROVASCULAR ACCIDENT PROPHYLAXIS
     Route: 048
     Dates: start: 20130719
  3. XARELTO [Suspect]
     Indication: ATRIAL FIBRILLATION
     Route: 048
     Dates: start: 20130719
  4. THYRADIN [Concomitant]
     Route: 048
  5. AMLODIPINE [Concomitant]
     Route: 048
  6. MYSLEE [Concomitant]
     Route: 048
  7. MINODRONIC ACID [Concomitant]
     Route: 048
  8. VASOLAN [Concomitant]
     Route: 048

REACTIONS (3)
  - Cerebral infarction [Recovering/Resolving]
  - Spinal compression fracture [Recovered/Resolved with Sequelae]
  - Fall [Recovered/Resolved with Sequelae]
